FAERS Safety Report 8271439-1 (Version None)
Quarter: 2012Q2

REPORT INFORMATION
  Report Type: 
  Country: None (occurrence: None)
  Receive Date: 20120410
  Receipt Date: 20120405
  Transmission Date: 20120825
  Serious: Yes (Death, Hospitalization)
  Sender: FDA-Public Use
  Company Number: PHHO2011US04798

PATIENT
  Sex: Female
  Weight: 89 kg

DRUGS (12)
  1. TASIGNA [Suspect]
     Dosage: 100 MG, BID
     Route: 048
     Dates: start: 20110311, end: 20110415
  2. AVELOX [Concomitant]
     Indication: ANTIBIOTIC THERAPY
     Dosage: 400 MG, QD
     Route: 048
     Dates: start: 20110303, end: 20110310
  3. AUGMENTIN '125' [Concomitant]
     Indication: PNEUMONIA
     Dosage: 70 MG, QD
     Route: 048
     Dates: start: 20110106
  4. BENADRYL [Concomitant]
     Indication: HYPERSENSITIVITY
     Dosage: 4 DF, PRN
     Route: 048
     Dates: start: 20110310
  5. ASPIRIN [Concomitant]
     Indication: PAIN
     Dosage: 325 MG, DAILY
     Route: 048
     Dates: start: 20100706
  6. INSULIN [Concomitant]
     Indication: HYPERGLYCAEMIA
  7. ZOLPIDEM [Concomitant]
     Indication: INSOMNIA
     Dosage: 10 MG, DAILY
     Route: 048
     Dates: start: 20110128
  8. FENTANYL CITRATE [Concomitant]
     Indication: PAIN
     Dosage: 200 MG, ONCE 72 HOUS
     Dates: start: 20110314
  9. TASIGNA [Suspect]
     Indication: METASTATIC MALIGNANT MELANOMA
     Dosage: 400 MG, BID
     Route: 048
     Dates: start: 20101216, end: 20110310
  10. INSULIN [Concomitant]
     Indication: DIABETES MELLITUS
     Dosage: PRN
     Dates: start: 20110217
  11. METOPROLOL TARTRATE [Concomitant]
     Indication: HYPERTENSION
     Dosage: 25 MG, DAILY
     Route: 048
     Dates: start: 20100103
  12. HYDROXYZINE [Concomitant]
     Indication: PRURITUS
     Dosage: 10 MG, DAILY
     Route: 048
     Dates: start: 20110314

REACTIONS (8)
  - INFECTION [None]
  - NEOPLASM MALIGNANT [None]
  - MALIGNANT MELANOMA [None]
  - DIABETIC FOOT [None]
  - HYPERGLYCAEMIA [None]
  - HERPES ZOSTER MULTI-DERMATOMAL [None]
  - HYPOGLYCAEMIA [None]
  - CONFUSIONAL STATE [None]
